FAERS Safety Report 5290802-4 (Version None)
Quarter: 2007Q2

REPORT INFORMATION
  Report Type: 
  Country: None (occurrence: None)
  Receive Date: 20070409
  Receipt Date: 20070328
  Transmission Date: 20071010
  Serious: Yes (Other)
  Sender: FDA-Public Use
  Company Number: JP-PFIZER INC-2007016047

PATIENT
  Sex: Male

DRUGS (7)
  1. JZOLOFT [Suspect]
     Route: 048
     Dates: start: 20070208, end: 20070222
  2. ANAFRANIL [Suspect]
     Indication: DEPRESSION
     Route: 048
  3. ANAFRANIL [Suspect]
     Indication: INSOMNIA
  4. LEVOTOMIN [Suspect]
     Indication: INSOMNIA
     Route: 048
  5. FLUNITRAZEPAM [Concomitant]
     Indication: INSOMNIA
     Dates: start: 20060121
  6. HALCION [Concomitant]
     Indication: INSOMNIA
  7. RESLIN [Concomitant]
     Route: 048
     Dates: start: 20070125, end: 20070207

REACTIONS (6)
  - AMNESIA [None]
  - CONVULSION [None]
  - DEHYDRATION [None]
  - FATIGUE [None]
  - INSOMNIA [None]
  - LOSS OF CONSCIOUSNESS [None]
